FAERS Safety Report 8421967-0 (Version None)
Quarter: 2012Q2

REPORT INFORMATION
  Report Type: 
  Country: None (occurrence: None)
  Receive Date: 20120608
  Receipt Date: 20120605
  Transmission Date: 20120825
  Serious: Yes (Death)
  Sender: FDA-Public Use
  Company Number: US-CELGENEUS-163-21880-12060716

PATIENT
  Sex: Male

DRUGS (12)
  1. MULTI-VITAMINS [Concomitant]
     Route: 065
  2. OMEPRAZOLE [Concomitant]
     Route: 065
  3. ZETIA [Concomitant]
     Route: 065
  4. REVLIMID [Suspect]
     Indication: MULTIPLE MYELOMA
     Dosage: 25 MILLIGRAM
     Route: 048
     Dates: start: 20080401
  5. TRAMADOL HCL [Concomitant]
     Route: 065
  6. CALCIUM [Concomitant]
     Route: 065
  7. GLUCO/CHONDR DR/MSM [Concomitant]
     Route: 065
  8. ZYRTEC [Concomitant]
     Route: 065
  9. REVLIMID [Suspect]
     Dosage: 10 MILLIGRAM
     Route: 048
     Dates: start: 20100301
  10. REVLIMID [Suspect]
     Dosage: 25 MILLIGRAM
     Route: 048
     Dates: start: 20120401, end: 20120101
  11. SERTRALINE HYDROCHLORIDE [Concomitant]
     Route: 065
  12. REVLIMID [Suspect]
     Dosage: 10 MILLIGRAM
     Route: 048
     Dates: start: 20091201

REACTIONS (1)
  - DEATH [None]
